FAERS Safety Report 12944924 (Version 1)
Quarter: 2016Q4

REPORT INFORMATION
  Report Type: Other
  Country: GB (occurrence: GB)
  Receive Date: 20161115
  Receipt Date: 20161115
  Transmission Date: 20170207
  Serious: Yes (Death)
  Sender: FDA-Public Use
  Company Number: GB-PERRIGO-16GB021642

PATIENT

DRUGS (15)
  1. HEROIN [Suspect]
     Active Substance: DIACETYLMORPHINE
     Indication: PRODUCT USED FOR UNKNOWN INDICATION
     Dosage: UNK
     Route: 051
     Dates: start: 201407, end: 201407
  2. METHYLENEDIOXYMETHAMPHETAMINE [Suspect]
     Active Substance: METHYLENEDIOXYMETHAMPHETAMINE
     Dosage: UNK
     Route: 065
     Dates: start: 201407, end: 201407
  3. NITRAZEPAM ACTAVIS [Suspect]
     Active Substance: NITRAZEPAM
     Dosage: UNK
     Route: 065
     Dates: start: 201407, end: 201407
  4. IBUPROFEN. [Suspect]
     Active Substance: IBUPROFEN
     Indication: PRODUCT USED FOR UNKNOWN INDICATION
     Dosage: DOSAGE FORM: UNSPECIFIED
     Route: 065
  5. DIAZEPAM. [Suspect]
     Active Substance: DIAZEPAM
     Dosage: 7 TABLETS
     Route: 065
     Dates: start: 20140729, end: 20140729
  6. METHYLENEDIOXYMETHAMPHETAMINE [Suspect]
     Active Substance: METHYLENEDIOXYMETHAMPHETAMINE
     Dosage: ONE TABLET
     Route: 065
     Dates: start: 20140729, end: 20140729
  7. DIAZEPAM. [Suspect]
     Active Substance: DIAZEPAM
     Indication: PRODUCT USED FOR UNKNOWN INDICATION
     Route: 065
     Dates: start: 20140730, end: 20140730
  8. ALCOHOL. [Suspect]
     Active Substance: ALCOHOL
     Indication: PRODUCT USED FOR UNKNOWN INDICATION
     Dosage: UNK
     Route: 048
     Dates: start: 201407, end: 201407
  9. ALCOHOL. [Suspect]
     Active Substance: ALCOHOL
     Dosage: AROUND 4 CANS OF LAGER
     Route: 048
     Dates: start: 20140729, end: 20140729
  10. BUPRENORPHINE. [Suspect]
     Active Substance: BUPRENORPHINE
     Indication: PRODUCT USED FOR UNKNOWN INDICATION
     Dosage: UNK
     Route: 065
  11. COCAINE [Suspect]
     Active Substance: COCAINE
     Indication: PRODUCT USED FOR UNKNOWN INDICATION
     Dosage: DOSAGE FORM: UNSPECIFIED
     Route: 065
  12. DIAZEPAM. [Suspect]
     Active Substance: DIAZEPAM
     Dosage: UNK
     Route: 065
     Dates: start: 201407, end: 201407
  13. METHYLENEDIOXYMETHAMPHETAMINE [Suspect]
     Active Substance: METHYLENEDIOXYMETHAMPHETAMINE
     Indication: PRODUCT USED FOR UNKNOWN INDICATION
     Dosage: 1.5 TABLETS
     Route: 065
     Dates: start: 20140730, end: 20140730
  14. NITRAZEPAM ACTAVIS [Suspect]
     Active Substance: NITRAZEPAM
     Indication: PRODUCT USED FOR UNKNOWN INDICATION
     Dosage: 3 TABLETS
     Route: 065
     Dates: start: 20140729, end: 20140729
  15. SUBUTEX [Suspect]
     Active Substance: BUPRENORPHINE HYDROCHLORIDE
     Indication: PRODUCT USED FOR UNKNOWN INDICATION
     Dosage: DOSAGE FORM: UNSPECIFIED
     Route: 065

REACTIONS (13)
  - Aortic arteriosclerosis [None]
  - Alcohol abuse [Fatal]
  - Scar [None]
  - Overdose [None]
  - Arteriosclerosis coronary artery [None]
  - Skin atrophy [None]
  - Skin lesion [None]
  - Cyanosis [None]
  - Toxicity to various agents [Fatal]
  - Coronary artery occlusion [None]
  - Cardiac disorder [None]
  - Substance abuse [Fatal]
  - Pulmonary oedema [None]

NARRATIVE: CASE EVENT DATE: 201407
